FAERS Safety Report 4531426-3 (Version None)
Quarter: 2004Q4

REPORT INFORMATION
  Report Type: 
  Country: None (occurrence: None)
  Receive Date: 20041217
  Receipt Date: 20041207
  Transmission Date: 20050328
  Serious: Yes (Hospitalization)
  Sender: FDA-Public Use
  Company Number: 2004AL001814

PATIENT
  Age: 31 Year
  Sex: Female
  Weight: 119.7496 kg

DRUGS (4)
  1. DICLOFENAC SODIUM [Suspect]
     Indication: NEPHRITIS
     Dosage: 50 MG; BID; PO
     Route: 048
     Dates: start: 20041123, end: 20041206
  2. LOTREL [Concomitant]
  3. BENICAR [Concomitant]
  4. OVCON-50 [Concomitant]

REACTIONS (2)
  - DRUG INEFFECTIVE [None]
  - HYPERSENSITIVITY [None]
